FAERS Safety Report 22201615 (Version 1)
Quarter: 2023Q2

REPORT INFORMATION
  Report Type: Spontaneous
  Country: RU (occurrence: None)
  Receive Date: 20230412
  Receipt Date: 20230412
  Transmission Date: 20230722
  Serious: Yes (Other)
  Sender: FDA-Public Use
  Company Number: RU-ROCHE-3325495

PATIENT
  Age: 57 Year

DRUGS (5)
  1. ATEZOLIZUMAB [Suspect]
     Active Substance: ATEZOLIZUMAB
     Indication: Lung neoplasm malignant
     Dosage: THE ATEZOLIZUMAB MAINTENANCE IT 1200 MG IV ON DAY 1 EVERY 3 WEEKS WAS CONTINUED ON 25/MAR/2022.
     Route: 041
     Dates: start: 20210309
  2. ATEZOLIZUMAB [Suspect]
     Active Substance: ATEZOLIZUMAB
     Dosage: MAR-APR/2023, MAINTENANCE IT ATEZOLIZUMAB 1200 MG ONCE EVERY 21 DAYS IS ONGOING.
     Route: 041
     Dates: start: 20210728
  3. BEVACIZUMAB [Suspect]
     Active Substance: BEVACIZUMAB
     Indication: Lung neoplasm malignant
     Route: 042
     Dates: start: 20210728
  4. ETOPOSIDE [Suspect]
     Active Substance: ETOPOSIDE
     Indication: Lung neoplasm malignant
     Dosage: DAY 1, DAY 2, DAY 3
     Route: 042
     Dates: start: 20210309
  5. CARBOPLATIN [Suspect]
     Active Substance: CARBOPLATIN
     Indication: Lung neoplasm malignant
     Dosage: AUC5 IV ON DAY 1
     Route: 042
     Dates: start: 20210309

REACTIONS (5)
  - Metastases to central nervous system [Unknown]
  - Metastases to central nervous system [Unknown]
  - Asthenia [Unknown]
  - Nausea [Unknown]
  - Dizziness [Unknown]

NARRATIVE: CASE EVENT DATE: 20220413
